FAERS Safety Report 8499349-5 (Version None)
Quarter: 2012Q2

REPORT INFORMATION
  Report Type: 
  Country: None (occurrence: None)
  Receive Date: 20120615
  Receipt Date: 20120604
  Transmission Date: 20120825
  Serious: Yes (Hospitalization, Other)
  Sender: FDA-Public Use
  Company Number: 2012032342

PATIENT
  Sex: Male
  Weight: 53.0709 kg

DRUGS (5)
  1. BERINERT [Suspect]
     Indication: HEREDITARY ANGIOEDEMA
     Dosage: SEE IMAGE
     Route: 042
     Dates: start: 20120511
  2. BERINERT [Suspect]
     Indication: HEREDITARY ANGIOEDEMA
     Dosage: SEE IMAGE
     Route: 042
     Dates: start: 20120423
  3. BERINERT [Suspect]
     Indication: HEREDITARY ANGIOEDEMA
     Dosage: SEE IMAGE
     Route: 042
     Dates: start: 20101201
  4. ZOFRAN [Concomitant]
  5. DILAUDID [Concomitant]

REACTIONS (2)
  - ABDOMINAL PAIN [None]
  - MATERNAL EXPOSURE DURING PREGNANCY [None]
